FAERS Safety Report 5193179-8 (Version None)
Quarter: 2006Q4

REPORT INFORMATION
  Report Type: 
  Country: None (occurrence: None)
  Receive Date: 20061228
  Receipt Date: 20060620
  Transmission Date: 20070319
  Serious: No
  Sender: FDA-Public Use
  Company Number: US-GLAXOSMITHKLINE-A0609698A

PATIENT
  Age: 70 Year
  Sex: Male

DRUGS (4)
  1. AVODART [Suspect]
     Indication: BENIGN PROSTATIC HYPERPLASIA
     Dosage: .5MG PER DAY
     Route: 048
     Dates: start: 20060501
  2. ASPIRIN [Concomitant]
  3. VYTORIN [Concomitant]
  4. ZANTAC [Concomitant]

REACTIONS (2)
  - GENITAL DISORDER MALE [None]
  - URINE FLOW DECREASED [None]
